FAERS Safety Report 5706887-4 (Version None)
Quarter: 2008Q2

REPORT INFORMATION
  Report Type: 
  Country: None (occurrence: None)
  Receive Date: 20080416
  Receipt Date: 20080405
  Transmission Date: 20081010
  Serious: Yes (Hospitalization)
  Sender: FDA-Public Use
  Company Number: US-ROCHE-557104

PATIENT
  Age: 34 Year
  Sex: Female

DRUGS (12)
  1. KYTRIL [Suspect]
     Indication: NAUSEA
     Dosage: BEFORE EACH MEAL
     Route: 048
     Dates: start: 20050101
  2. LEXAPRO [Concomitant]
     Route: 048
  3. MIDODRINE [Concomitant]
  4. LIDOCAINE [Concomitant]
     Dosage: LIDOCAINE DRIP-NEEDLE AND PUMP- NEEDLE INTO STOMACH
  5. NADOLOL [Concomitant]
  6. METHADONE HCL [Concomitant]
     Indication: DRUG USE FOR UNKNOWN INDICATION
  7. HYDROCORTISONE [Concomitant]
     Indication: ADDISON'S DISEASE
  8. PRILOSEC [Concomitant]
  9. DULCOLAX [Concomitant]
     Dosage: AS NEEDED
  10. DULCOLAX [Concomitant]
     Dosage: AS NEEDED
  11. DULCOLAX [Concomitant]
     Dosage: AS NEEDED
  12. SENNA [Concomitant]

REACTIONS (3)
  - NAUSEA [None]
  - VOMITING [None]
  - WEIGHT DECREASED [None]
